FAERS Safety Report 20235794 (Version 1)
Quarter: 2021Q4

REPORT INFORMATION
  Report Type: Spontaneous
  Country: DE (occurrence: DE)
  Receive Date: 20211228
  Receipt Date: 20211228
  Transmission Date: 20220303
  Serious: Yes (Death, Life-Threatening, Other)
  Sender: FDA-Public Use
  Company Number: DE-002147023-PHHY2016DE070544

PATIENT
  Sex: Female

DRUGS (1)
  1. LETROZOLE [Suspect]
     Active Substance: LETROZOLE
     Indication: Product used for unknown indication
     Dosage: UNK
     Route: 065
     Dates: start: 201408

REACTIONS (4)
  - Pulmonary embolism [Fatal]
  - Dyspnoea [Fatal]
  - Musculoskeletal chest pain [Fatal]
  - Pulmonary fibrosis [Unknown]

NARRATIVE: CASE EVENT DATE: 20150101
